FAERS Safety Report 6207587-7 (Version None)
Quarter: 2009Q2

REPORT INFORMATION
  Report Type: 
  Country: None (occurrence: None)
  Receive Date: 20090526
  Receipt Date: 20090310
  Transmission Date: 20091009
  Serious: Yes (Hospitalization)
  Sender: FDA-Public Use
  Company Number: 09P-167-0561803-00

PATIENT
  Age: 1 Year
  Sex: Male

DRUGS (1)
  1. SYNAGIS [Suspect]

REACTIONS (3)
  - RESPIRATORY DISORDER [None]
  - RESPIRATORY SYNCYTIAL VIRUS INFECTION [None]
  - RESPIRATORY TRACT INFECTION VIRAL [None]
